FAERS Safety Report 7888021-8 (Version None)
Quarter: 2011Q4

REPORT INFORMATION
  Report Type: 
  Country: None (occurrence: None)
  Receive Date: 20111101
  Receipt Date: 20111017
  Transmission Date: 20120403
  Serious: Yes (Hospitalization)
  Sender: FDA-Public Use
  Company Number: 2011MA015283

PATIENT
  Age: 67 Year
  Sex: Female

DRUGS (6)
  1. ESCITALOPRAM [Suspect]
     Indication: PSYCHOTIC DISORDER
  2. ROSUVASTATIN [Concomitant]
  3. PAROXETINE HCL [Concomitant]
  4. LISINOPRIL AND HYDROCHLOROTHIAZIDE [Concomitant]
  5. RISPERIDONE [Suspect]
     Indication: DEPRESSION
     Dosage: 0.5 MG;BID;
  6. CLONAZEPAM [Suspect]
     Indication: DEPRESSION

REACTIONS (14)
  - PSYCHOTIC DISORDER [None]
  - DEPRESSED MOOD [None]
  - SUICIDAL IDEATION [None]
  - AUTONOMIC NERVOUS SYSTEM IMBALANCE [None]
  - INSOMNIA [None]
  - FAMILY STRESS [None]
  - FLAT AFFECT [None]
  - THINKING ABNORMAL [None]
  - MASKED FACIES [None]
  - PARKINSONIAN CRISIS [None]
  - SOMATIC DELUSION [None]
  - DECREASED APPETITE [None]
  - BRADYKINESIA [None]
  - ANHEDONIA [None]
